FAERS Safety Report 10251201 (Version 1)
Quarter: 2014Q2

REPORT INFORMATION
  Report Type: Spontaneous
  Country: US (occurrence: US)
  Receive Date: 20140620
  Receipt Date: 20140620
  Transmission Date: 20141212
  Serious: No
  Sender: FDA-Public Use
  Company Number: US-ASTRAZENECA-2014SE44837

PATIENT
  Sex: Female

DRUGS (1)
  1. NEXIUM 24HR [Suspect]
     Dosage: DOSE AND FREQUENCY UNKNOWN
     Route: 048
     Dates: start: 201406

REACTIONS (1)
  - Abdominal discomfort [Unknown]
